FAERS Safety Report 8924635 (Version 2)
Quarter: 2012Q4

REPORT INFORMATION
  Report Type: 
  Country: US (occurrence: None)
  Receive Date: 20121116
  Receipt Date: 20121121
  Transmission Date: 20130627
  Serious: Yes (Hospitalization)
  Sender: FDA-Public Use
  Company Number: UTC-025400

PATIENT
  Age: 54 Year
  Sex: Female
  Weight: 87.18 kg

DRUGS (1)
  1. TYVASO [Suspect]
     Indication: CHRONIC PULMONARY HEART DISEASE
     Dosage: (4 IN 1D)
     Route: 055
     Dates: start: 20120711

REACTIONS (1)
  - Gastric ulcer haemorrhage [None]
